FAERS Safety Report 23827073 (Version 2)
Quarter: 2024Q2

REPORT INFORMATION
  Report Type: Report from Study
  Country: EG (occurrence: EG)
  Receive Date: 20240507
  Receipt Date: 20240617
  Transmission Date: 20240716
  Serious: Yes (Hospitalization)
  Sender: FDA-Public Use
  Company Number: EG-BIOGEN-2024BI01244830

PATIENT
  Age: 36 Year
  Sex: Female
  Weight: 77 kg

DRUGS (3)
  1. TYSABRI [Suspect]
     Active Substance: NATALIZUMAB
     Indication: Multiple sclerosis
     Route: 050
     Dates: start: 202205, end: 202403
  2. TYSABRI [Suspect]
     Active Substance: NATALIZUMAB
     Route: 050
     Dates: start: 202206, end: 202403
  3. PAROXEDEP CR [Concomitant]
     Indication: Obsessive-compulsive disorder
     Route: 050
     Dates: start: 202304

REACTIONS (4)
  - Multiple sclerosis relapse [Not Recovered/Not Resolved]
  - Multiple sclerosis [Unknown]
  - Obsessive-compulsive disorder [Unknown]
  - Post-traumatic stress disorder [Unknown]

NARRATIVE: CASE EVENT DATE: 20231101
